FAERS Safety Report 23241478 (Version 1)
Quarter: 2023Q4

REPORT INFORMATION
  Report Type: Spontaneous
  Country: US (occurrence: US)
  Receive Date: 20231129
  Receipt Date: 20231129
  Transmission Date: 20240109
  Serious: No
  Sender: FDA-Public Use
  Company Number: US-PFIZER INC-202101116767

PATIENT
  Age: 83 Year
  Sex: Female

DRUGS (3)
  1. NICOTROL [Suspect]
     Active Substance: NICOTINE
     Indication: Chronic respiratory failure
     Dosage: 10 MG, AS NEEDED (1 PUFF INTO THE LUNGS. UP TO 6 CARTRIDGES/DAY)
     Dates: start: 2010
  2. NICOTROL [Suspect]
     Active Substance: NICOTINE
     Indication: Hypoxia
  3. NICOTROL [Suspect]
     Active Substance: NICOTINE
     Indication: Smoking cessation therapy

REACTIONS (3)
  - Off label use [Unknown]
  - Product use issue [Unknown]
  - Nicotine dependence [Unknown]

NARRATIVE: CASE EVENT DATE: 20211008
